FAERS Safety Report 6235557-1 (Version None)
Quarter: 2009Q2

REPORT INFORMATION
  Report Type: 
  Country: None (occurrence: None)
  Receive Date: 20090618
  Receipt Date: 20090202
  Transmission Date: 20091009
  Serious: No
  Sender: FDA-Public Use
  Company Number: US-ASTRAZENECA-2009UW02982

PATIENT
  Age: 24068 Day
  Sex: Female
  Weight: 56.7 kg

DRUGS (3)
  1. RHINOCORT [Suspect]
     Indication: RHINITIS
     Route: 045
     Dates: start: 20081201, end: 20090123
  2. FLONASE [Concomitant]
  3. PRISIMILONE CREAM [Concomitant]

REACTIONS (2)
  - DYSGEUSIA [None]
  - PAROSMIA [None]
